FAERS Safety Report 10577538 (Version 4)
Quarter: 2015Q4

REPORT INFORMATION
  Report Type: Spontaneous
  Country: JP (occurrence: JP)
  Receive Date: 20141111
  Receipt Date: 20151111
  Transmission Date: 20160304
  Serious: Yes (Hospitalization)
  Sender: FDA-Public Use
  Company Number: JP-ELI_LILLY_AND_COMPANY-JP201410007729

PATIENT
  Sex: Female

DRUGS (3)
  1. HUMALOG [Suspect]
     Active Substance: INSULIN LISPRO
     Indication: TYPE 1 DIABETES MELLITUS
     Dosage: 44 IU, OTHER
     Route: 058
     Dates: start: 201004, end: 20140416
  2. LANTUS [Concomitant]
     Active Substance: INSULIN GLARGINE
     Indication: TYPE 1 DIABETES MELLITUS
     Dosage: UNK
     Route: 058
     Dates: start: 201004, end: 20140416
  3. HUMALOG [Suspect]
     Active Substance: INSULIN LISPRO
     Indication: TYPE 1 DIABETES MELLITUS
     Dosage: 43 IU, OTHER
     Route: 058
     Dates: start: 20140416, end: 20141006

REACTIONS (3)
  - Diabetes mellitus inadequate control [Recovered/Resolved]
  - Maternal exposure before pregnancy [Recovered/Resolved]
  - Maternal exposure during pregnancy [Recovered/Resolved]
